FAERS Safety Report 25861906 (Version 2)
Quarter: 2025Q4

REPORT INFORMATION
  Report Type: Report from Study
  Country: US (occurrence: US)
  Receive Date: 20250930
  Receipt Date: 20251128
  Transmission Date: 20260118
  Serious: Yes (Hospitalization)
  Sender: ACADIA PHARMACEUTICALS
  Company Number: US-ACADIA PHARMACEUTICALS INC.-ACA-2025-PIM-010731

PATIENT
  Age: 72 Year
  Sex: Male

DRUGS (17)
  1. NUPLAZID [Suspect]
     Active Substance: PIMAVANSERIN TARTRATE
     Indication: Parkinson^s disease psychosis
     Dosage: 34 MILLIGRAM, QD
     Route: 048
     Dates: start: 20250425
  2. CARVEDILOL [Concomitant]
     Active Substance: CARVEDILOL
  3. HUMALOG [Concomitant]
     Active Substance: INSULIN LISPRO
  4. ENTACAPONE [Concomitant]
     Active Substance: ENTACAPONE
  5. SINEMET [Concomitant]
     Active Substance: CARBIDOPA\LEVODOPA
  6. BUMEX [Concomitant]
     Active Substance: BUMETANIDE
  7. OLOPATADINE [Concomitant]
     Active Substance: OLOPATADINE
  8. MIRALAX [Concomitant]
     Active Substance: POLYETHYLENE GLYCOL 3350
  9. LETROZOLE [Concomitant]
     Active Substance: LETROZOLE
  10. MORNIFLUMATE [Concomitant]
     Active Substance: MORNIFLUMATE
  11. ACRIVASTINE [Concomitant]
     Active Substance: ACRIVASTINE
  12. MELATONIN [Concomitant]
     Active Substance: MELATONIN
  13. FISH OIL [Concomitant]
     Active Substance: FISH OIL
  14. SEROQUEL [Concomitant]
     Active Substance: QUETIAPINE FUMARATE
  15. SOD BICARBONATE [Concomitant]
  16. ZOFRAN [Concomitant]
     Active Substance: ONDANSETRON HYDROCHLORIDE
  17. CLARITHROMYCIN [Concomitant]
     Active Substance: CLARITHROMYCIN

REACTIONS (2)
  - Urinary tract infection [Unknown]
  - Therapy interrupted [Not Recovered/Not Resolved]

NARRATIVE: CASE EVENT DATE: 20250919
